FAERS Safety Report 5339983-4 (Version None)
Quarter: 2007Q2

REPORT INFORMATION
  Report Type: 
  Country: None (occurrence: None)
  Receive Date: 20070531
  Receipt Date: 20070524
  Transmission Date: 20071010
  Serious: Yes (Death)
  Sender: FDA-Public Use
  Company Number: FR-AVENTIS-200711798FR

PATIENT

DRUGS (1)
  1. LOVENOX [Suspect]

REACTIONS (1)
  - DEATH [None]
